FAERS Safety Report 14789881 (Version 4)
Quarter: 2018Q2

REPORT INFORMATION
  Report Type: Spontaneous
  Country: US (occurrence: US)
  Receive Date: 20180423
  Receipt Date: 20180517
  Transmission Date: 20180711
  Serious: No
  Sender: FDA-Public Use
  Company Number: US-PFIZER INC-2018163456

PATIENT
  Age: 82 Year
  Sex: Male
  Weight: 72.57 kg

DRUGS (5)
  1. ADVIL [Suspect]
     Active Substance: IBUPROFEN
     Indication: PAIN
     Dosage: 200 MG, AS NEEDED (ONE EVERY FEW DAYS IF HE NEEDS IT)/ TAKES ONE EVERY COUPLE WEEKS
     Route: 048
     Dates: start: 201802
  2. ASPIRIN. [Concomitant]
     Active Substance: ASPIRIN
     Indication: CARDIAC DISORDER
     Dosage: 81 MG, 1X/DAY (DAILY)
     Route: 048
     Dates: start: 2008
  3. ADVIL [Suspect]
     Active Substance: IBUPROFEN
     Indication: DISCOMFORT
     Dosage: 200 MG, AS NEEDED (WHEN NEEDED)
     Dates: start: 201712, end: 201804
  4. SIMVASTATIN. [Concomitant]
     Active Substance: SIMVASTATIN
     Dosage: UNK
     Dates: start: 2008
  5. SIMVASTATIN. [Concomitant]
     Active Substance: SIMVASTATIN
     Indication: CARDIAC DISORDER
     Dosage: 10 MG, 1X/DAY
     Route: 048

REACTIONS (1)
  - Hyperhidrosis [Not Recovered/Not Resolved]

NARRATIVE: CASE EVENT DATE: 201712
